FAERS Safety Report 5088349-3 (Version None)
Quarter: 2006Q3

REPORT INFORMATION
  Report Type: 
  Country: None (occurrence: None)
  Receive Date: 20060821
  Receipt Date: 20060811
  Transmission Date: 20061208
  Serious: Yes (Death)
  Sender: FDA-Public Use
  Company Number: MEDI-0004639

PATIENT
  Age: 69 Year
  Sex: Male
  Weight: 81.2846 kg

DRUGS (3)
  1. ETHYOL [Suspect]
     Indication: RADIOTHERAPY
     Dosage: 500 MG, 1 IN 1 D, SUBCUTANEOUS
     Route: 058
     Dates: start: 20060328, end: 20060419
  2. RADIATION THERAPY [Concomitant]
  3. COMPAZINE [Concomitant]

REACTIONS (1)
  - NAUSEA [None]
